FAERS Safety Report 10535635 (Version 2)
Quarter: 2014Q4

REPORT INFORMATION
  Report Type: Spontaneous
  Country: DE (occurrence: DE)
  Receive Date: 20141022
  Receipt Date: 20141022
  Transmission Date: 20150529
  Serious: Yes (Other)
  Sender: FDA-Public Use
  Company Number: DE-009507513-1406DEU008595

PATIENT
  Age: 39 Year
  Sex: Female

DRUGS (1)
  1. IMPLANON [Suspect]
     Active Substance: ETONOGESTREL
     Indication: CONTRACEPTION
     Dosage: 1 ROD
     Route: 058
     Dates: start: 20040903

REACTIONS (7)
  - Skin graft [Recovered/Resolved]
  - Colitis ulcerative [Unknown]
  - Autoimmune disorder [Not Recovered/Not Resolved]
  - Incorrect drug administration duration [Unknown]
  - Pyoderma [Unknown]
  - Impaired healing [Recovered/Resolved]
  - Medical device complication [Not Recovered/Not Resolved]

NARRATIVE: CASE EVENT DATE: 2004
